FAERS Safety Report 6938778-5 (Version None)
Quarter: 2010Q3

REPORT INFORMATION
  Report Type: 
  Country: None (occurrence: None)
  Receive Date: 20100824
  Receipt Date: 20100812
  Transmission Date: 20110219
  Serious: Yes (Hospitalization)
  Sender: FDA-Public Use
  Company Number: JP-ROCHE-650587

PATIENT
  Sex: Female
  Weight: 66 kg

DRUGS (8)
  1. TOCILIZUMAB [Suspect]
     Indication: RHEUMATOID ARTHRITIS
     Route: 041
     Dates: start: 20080813, end: 20080813
  2. TOCILIZUMAB [Suspect]
     Route: 041
     Dates: start: 20080908, end: 20080908
  3. TOCILIZUMAB [Suspect]
     Route: 041
     Dates: start: 20081006, end: 20081006
  4. TOCILIZUMAB [Suspect]
     Route: 041
     Dates: start: 20081105, end: 20081105
  5. TOCILIZUMAB [Suspect]
     Route: 041
     Dates: start: 20081203, end: 20081203
  6. TOCILIZUMAB [Suspect]
     Route: 041
     Dates: start: 20090601, end: 20090601
  7. TOCILIZUMAB [Suspect]
     Route: 041
     Dates: start: 20090629, end: 20090629
  8. TOCILIZUMAB [Suspect]
     Route: 041
     Dates: start: 20100729

REACTIONS (1)
  - BREAST CANCER [None]
